FAERS Safety Report 19722070 (Version 8)
Quarter: 2023Q4

REPORT INFORMATION
  Report Type: Report from Study
  Country: AT (occurrence: AT)
  Receive Date: 20210819
  Receipt Date: 20231031
  Transmission Date: 20240109
  Serious: Yes (Other)
  Sender: FDA-Public Use
  Company Number: AT-ROCHE-2475540

PATIENT
  Age: 79 Year
  Sex: Female
  Weight: 48 kg

DRUGS (54)
  1. PACLITAXEL [Suspect]
     Active Substance: PACLITAXEL
     Indication: Breast cancer
     Dosage: 113.69 MG, QW (MOST RECENT DOSE 14/SEP/2018)
     Route: 042
     Dates: start: 20180810
  2. PACLITAXEL [Suspect]
     Active Substance: PACLITAXEL
     Indication: HER2 positive breast cancer
     Dosage: 113.69 MILLIGRAM, QW
     Route: 042
     Dates: start: 20180914
  3. FEMARA [Suspect]
     Active Substance: LETROZOLE
     Indication: Breast cancer
     Dosage: 2.5 MILLIGRAM, QD (ON 13/JUN/2019,)
     Route: 048
     Dates: start: 20181029
  4. FEMARA [Suspect]
     Active Substance: LETROZOLE
     Indication: HER2 positive breast cancer
     Dosage: 3 MILLIGRAM, QD
     Route: 048
     Dates: start: 20181029
  5. FEMARA [Suspect]
     Active Substance: LETROZOLE
     Dosage: 2.5 MILLIGRAM, QD
     Route: 048
     Dates: start: 20190613
  6. HERCEPTIN [Suspect]
     Active Substance: TRASTUZUMAB
     Indication: Breast cancer
     Dosage: 384 MILLIGRAM, Q3W (MOST RECENT DOSE PRIO)
     Route: 042
     Dates: start: 20180810, end: 20180831
  7. HERCEPTIN [Suspect]
     Active Substance: TRASTUZUMAB
     Indication: HER2 positive breast cancer
     Dosage: 384 MILLIGRAM, Q3W
     Route: 042
     Dates: start: 20180928, end: 20180928
  8. HERCEPTIN [Suspect]
     Active Substance: TRASTUZUMAB
     Dosage: 276 MILLIGRAM, Q3W
     Route: 042
     Dates: start: 20181019, end: 20181019
  9. HERCEPTIN [Suspect]
     Active Substance: TRASTUZUMAB
     Dosage: 276 MILLIGRAM, QW
     Route: 042
     Dates: start: 20180928, end: 20180928
  10. HERCEPTIN [Suspect]
     Active Substance: TRASTUZUMAB
     Dosage: 276 MILLIGRAM, QW
     Route: 042
     Dates: start: 20180810, end: 20180831
  11. HERCEPTIN [Suspect]
     Active Substance: TRASTUZUMAB
     Dosage: 154 MILLIGRAM, Q3W
     Route: 042
     Dates: start: 20190704, end: 20190704
  12. FASLODEX [Suspect]
     Active Substance: FULVESTRANT
     Indication: Breast cancer
     Dosage: 500 MILLIGRAM, Q28D
     Route: 030
     Dates: start: 20190919, end: 20191112
  13. FASLODEX [Suspect]
     Active Substance: FULVESTRANT
     Indication: HER2 positive breast cancer
  14. NOLVADEX [Suspect]
     Active Substance: TAMOXIFEN CITRATE
     Indication: Breast cancer
     Dosage: 20 MILLIGRAM
     Route: 048
     Dates: start: 20190819, end: 20190827
  15. NOLVADEX [Suspect]
     Active Substance: TAMOXIFEN CITRATE
     Indication: HER2 positive breast cancer
     Dosage: UNK
     Route: 048
  16. IBRANCE [Suspect]
     Active Substance: PALBOCICLIB
     Indication: Breast cancer
     Dosage: 125 MILLIGRAM (MOST RECENT DOSE 18/OCT/2019)
     Route: 048
     Dates: start: 20190919
  17. IBRANCE [Suspect]
     Active Substance: PALBOCICLIB
     Indication: HER2 positive breast cancer
     Dosage: 125 MILLIGRAM
     Route: 048
     Dates: start: 20191018
  18. PERJETA [Suspect]
     Active Substance: PERTUZUMAB
     Indication: Breast cancer
     Dosage: 840 MILLIGRAM, Q3W (MOST RECENT DOSE PRIOR)
     Route: 042
     Dates: start: 20180810, end: 20180810
  19. PERJETA [Suspect]
     Active Substance: PERTUZUMAB
     Indication: HER2 positive breast cancer
     Dosage: 840 MILLIGRAM, Q3W (MOST RECENT DOSE PRIOR)
     Route: 042
     Dates: start: 20180831
  20. PACLITAXEL [Suspect]
     Active Substance: PACLITAXEL
     Indication: Breast cancer
     Dosage: 142.11 MILLIGRAM, QW (MOST RECENT DOSE)
     Route: 042
     Dates: start: 20180928, end: 20181005
  21. PACLITAXEL [Suspect]
     Active Substance: PACLITAXEL
     Indication: HER2 positive breast cancer
  22. ADO-TRASTUZUMAB EMTANSINE [Suspect]
     Active Substance: ADO-TRASTUZUMAB EMTANSINE
     Indication: Breast cancer
     Dosage: 154 MILLIGRAM, Q3W (154 MG EVERY 3 WEEKS )
     Route: 042
     Dates: start: 20190704, end: 20190704
  23. ABRAXANE [Suspect]
     Active Substance: PACLITAXEL
     Indication: Breast cancer
     Dosage: 142.11 MILLIGRAM, QW
     Route: 042
     Dates: start: 20180928, end: 20181005
  24. ABRAXANE [Suspect]
     Active Substance: PACLITAXEL
     Dosage: 142.11 MILLIGRAM, QW
     Route: 042
     Dates: start: 20181019
  25. XGEVA [Suspect]
     Active Substance: DENOSUMAB
     Indication: HER2 positive breast cancer
     Dosage: MOST RECENT DOSE 25/FEB/2019
     Route: 058
     Dates: start: 20180817
  26. LASIX [Concomitant]
     Active Substance: FUROSEMIDE
     Indication: Oedema peripheral
     Dosage: UNK
     Route: 065
     Dates: start: 20191106, end: 20191115
  27. Guttalax [Concomitant]
     Indication: Product used for unknown indication
     Dosage: UNK
     Route: 065
     Dates: start: 20191115
  28. CALCIUM CHLORIDE\SODIUM CHLORIDE\SODIUM PHOSPHATE, DIBASIC, ANHYDROUS\ [Concomitant]
     Active Substance: CALCIUM CHLORIDE\SODIUM CHLORIDE\SODIUM PHOSPHATE, DIBASIC, ANHYDROUS\SODIUM PHOSPHATE, MONOBASIC, A
     Indication: Mucosal inflammation
     Dosage: UNK (ONGOING = NOT CHECKED)
     Route: 065
     Dates: start: 20180921
  29. CEOLAT [Concomitant]
     Indication: Product used for unknown indication
     Dosage: UNK
     Route: 065
     Dates: start: 20191115
  30. CEOLAT [Concomitant]
     Dosage: UNK
     Route: 065
     Dates: start: 20181115
  31. DEXIBUPROFEN [Concomitant]
     Active Substance: DEXIBUPROFEN
     Indication: Osteonecrosis of jaw
     Dosage: UNK
     Route: 065
     Dates: start: 20190725, end: 20191015
  32. DEXIBUPROFEN [Concomitant]
     Active Substance: DEXIBUPROFEN
     Dosage: UNK
     Route: 065
  33. MORPHINE [Concomitant]
     Active Substance: MORPHINE
     Indication: Dyspnoea
     Dosage: UNK
     Route: 065
     Dates: start: 20191111
  34. KONAKION [Concomitant]
     Active Substance: PHYTONADIONE
     Dosage: UNK
     Route: 065
     Dates: start: 20191115
  35. LOPERAMIDE HYDROCHLORIDE [Concomitant]
     Active Substance: LOPERAMIDE HYDROCHLORIDE
     Indication: Diarrhoea
     Dosage: UNK (ONGOING = CHECKED)
     Route: 065
     Dates: start: 20181127
  36. TRAZODONE HYDROCHLORIDE [Concomitant]
     Active Substance: TRAZODONE HYDROCHLORIDE
     Indication: Product used for unknown indication
     Dosage: UNK (ONGOING = CHECKED)
     Route: 065
  37. PANTOPRAZOLE SODIUM [Concomitant]
     Active Substance: PANTOPRAZOLE SODIUM
     Indication: Abdominal pain upper
     Dosage: UNK (ONGOING = NOT CHECKED)
     Route: 065
     Dates: start: 20181109, end: 20191101
  38. Paspertin [Concomitant]
     Indication: Nausea
     Dosage: UNK
     Route: 065
     Dates: start: 20191108, end: 20191115
  39. MYCOSTATIN [Concomitant]
     Active Substance: NYSTATIN
     Indication: Mucosal inflammation
     Dosage: UNK (ONGOING = NOT CHECKED)
     Route: 065
     Dates: start: 20190819
  40. Temesta [Concomitant]
     Indication: Product used for unknown indication
     Dosage: UNK (ONGOING = CHECKED)
     Route: 065
  41. POLYETHYLENE GLYCOL 3350\POTASSIUM CHLORIDE\SODIUM BICARBONATE\SODIUM [Concomitant]
     Active Substance: POLYETHYLENE GLYCOL 3350\POTASSIUM CHLORIDE\SODIUM BICARBONATE\SODIUM CHLORIDE
     Indication: Product used for unknown indication
     Dosage: UNK
     Route: 065
     Dates: start: 20191115
  42. ANTIFLAT [Concomitant]
     Indication: Product used for unknown indication
     Dosage: UNK (ONGOING = CHECKED)
     Route: 065
     Dates: start: 20181126
  43. CIPROFLOXACIN [Concomitant]
     Active Substance: CIPROFLOXACIN
     Indication: Gastroenteritis radiation
     Dosage: UNK (ONGOING = NOT CHECKED)
     Route: 065
     Dates: start: 20181118
  44. TAZOBACTAM [Concomitant]
     Active Substance: TAZOBACTAM
     Indication: Infection
     Dosage: UNK (ONGOING = NOT CHECKED)
     Route: 065
     Dates: start: 20191102, end: 20191113
  45. MEFENAMIC ACID [Concomitant]
     Active Substance: MEFENAMIC ACID
     Indication: Arthralgia
     Dosage: UNK (ONGOING = CHECKED)
     Route: 065
     Dates: start: 20180914
  46. NOVALGINA [Concomitant]
     Active Substance: ACETAMINOPHEN\CAFFEINE
     Indication: Product used for unknown indication
     Dosage: UNK (ONGOING = NOT CHECKED)
     Route: 065
     Dates: start: 20181126, end: 20191103
  47. AVELOX [Concomitant]
     Active Substance: MOXIFLOXACIN HYDROCHLORIDE
     Indication: Osteonecrosis of jaw
     Dosage: UNK (ONGOING = NOT CHECKED)
     Route: 065
     Dates: start: 20190919, end: 20191101
  48. DEXAMETHASONE [Concomitant]
     Active Substance: DEXAMETHASONE
     Dosage: UNK
     Route: 065
     Dates: start: 20191115
  49. POLYETHYLENE GLYCOLS [Concomitant]
     Active Substance: POLYETHYLENE GLYCOLS
     Indication: Product used for unknown indication
     Dosage: UNK
     Route: 065
  50. LACTULOSE [Concomitant]
     Active Substance: LACTULOSE
     Dosage: ONGOING = NOT CHECKED
     Route: 065
     Dates: end: 20191115
  51. DEXABENE [Concomitant]
     Dosage: UNK
     Route: 065
  52. LAFENE [Concomitant]
     Dosage: UNK, ONGOING = NOT CHECKED
     Route: 065
     Dates: end: 20191115
  53. AMLODIPINE [Concomitant]
     Active Substance: AMLODIPINE BESYLATE
     Dosage: UNK
     Route: 065
  54. FENAKUT [Concomitant]
     Dosage: UNK
     Route: 065

REACTIONS (5)
  - Ascites [Recovering/Resolving]
  - Neutrophil count decreased [Recovered/Resolved]
  - White blood cell count decreased [Recovered/Resolved]
  - Underdose [Unknown]
  - Overdose [Unknown]

NARRATIVE: CASE EVENT DATE: 20191004
